FAERS Safety Report 24685321 (Version 2)
Quarter: 2024Q4

REPORT INFORMATION
  Report Type: Spontaneous
  Country: ES (occurrence: ES)
  Receive Date: 20241202
  Receipt Date: 20241203
  Transmission Date: 20250114
  Serious: Yes (Hospitalization, Other)
  Sender: PFIZER
  Company Number: ES-PFIZER INC-PV202400152960

PATIENT
  Age: 48 Year
  Sex: Male

DRUGS (1)
  1. CARBOPLATIN [Suspect]
     Active Substance: CARBOPLATIN
     Indication: Seminoma
     Dosage: 1000 MG,ONE COURSE(555.56 MG/M2 OR AUC 7)

REACTIONS (4)
  - Acute kidney injury [Recovered/Resolved]
  - Ureteric obstruction [Recovered/Resolved]
  - Haematuria [Recovered/Resolved]
  - Off label use [Unknown]
